FAERS Safety Report 16710952 (Version 2)
Quarter: 2020Q1

REPORT INFORMATION
  Report Type: Spontaneous
  Country: AU (occurrence: AU)
  Receive Date: 20190816
  Receipt Date: 20200211
  Transmission Date: 20200409
  Serious: Yes (Death, Hospitalization, Other)
  Sender: FDA-Public Use
  Company Number: AU-ROCHE-2381767

PATIENT
  Age: 35 Year
  Sex: Female

DRUGS (11)
  1. GEFITINIB. [Concomitant]
     Active Substance: GEFITINIB
  2. LORATADINE. [Concomitant]
     Active Substance: LORATADINE
  3. RANITIDINE. [Concomitant]
     Active Substance: RANITIDINE
  4. OSIMERTINIB. [Concomitant]
     Active Substance: OSIMERTINIB
  5. DEXAMETHASONE. [Concomitant]
     Active Substance: DEXAMETHASONE
     Route: 065
  6. AVASTIN [Suspect]
     Active Substance: BEVACIZUMAB
     Indication: NON-SMALL CELL LUNG CANCER
     Route: 065
     Dates: start: 20190131
  7. TAXOL [Concomitant]
     Active Substance: PACLITAXEL
     Route: 065
  8. PEMETREXED. [Suspect]
     Active Substance: PEMETREXED
     Indication: NON-SMALL CELL LUNG CANCER
     Route: 065
     Dates: start: 20190131
  9. GEMCITABINE. [Concomitant]
     Active Substance: GEMCITABINE
     Dosage: 70% DOSE D1, 8 Q3/52)
     Route: 065
     Dates: start: 201910
  10. TARCEVA [Suspect]
     Active Substance: ERLOTINIB HYDROCHLORIDE
     Indication: NON-SMALL CELL LUNG CANCER
     Route: 065
     Dates: start: 20190131
  11. TECENTRIQ [Suspect]
     Active Substance: ATEZOLIZUMAB
     Indication: NON-SMALL CELL LUNG CANCER
     Route: 065
     Dates: start: 20190131

REACTIONS (17)
  - Upper respiratory tract infection [Unknown]
  - Nausea [Unknown]
  - Liver function test abnormal [Unknown]
  - Orthostatic hypotension [Unknown]
  - Constipation [Unknown]
  - Dehydration [Unknown]
  - Febrile neutropenia [Unknown]
  - Bladder neck obstruction [Unknown]
  - Vomiting [Unknown]
  - Abdominal pain upper [Unknown]
  - Pyrexia [Unknown]
  - Abdominal pain [Unknown]
  - Death [Fatal]
  - Diarrhoea [Unknown]
  - Neuropathy peripheral [Unknown]
  - Fatigue [Unknown]
  - Weight decreased [Unknown]

NARRATIVE: CASE EVENT DATE: 20191223
